FAERS Safety Report 5005937-0 (Version None)
Quarter: 2006Q2

REPORT INFORMATION
  Report Type: 
  Country: None (occurrence: None)
  Receive Date: 20060517
  Receipt Date: 20060517
  Transmission Date: 20061013
  Serious: Yes (Other)
  Sender: FDA-Public Use
  Company Number: None

PATIENT
  Age: 77 Year
  Sex: Male
  Weight: 64.8644 kg

DRUGS (1)
  1. CIALIS [Suspect]
     Indication: ERECTILE DYSFUNCTION
     Dosage: 10 MG 1 PO
     Route: 048
     Dates: start: 20050612, end: 20050612

REACTIONS (3)
  - BLOOD PRESSURE DECREASED [None]
  - DIFFICULTY IN WALKING [None]
  - DIZZINESS [None]
